FAERS Safety Report 7505488-5 (Version None)
Quarter: 2011Q2

REPORT INFORMATION
  Report Type: 
  Country: None (occurrence: None)
  Receive Date: 20110526
  Receipt Date: 20110518
  Transmission Date: 20111010
  Serious: Yes (Death, Hospitalization)
  Sender: FDA-Public Use
  Company Number: IN-CUBIST-2011S1000345

PATIENT
  Age: 66 Year
  Sex: Female
  Weight: 60 kg

DRUGS (2)
  1. CUBICIN [Suspect]
     Indication: SEPSIS
     Route: 042
     Dates: start: 20110216, end: 20110216
  2. MEROPENEM [Concomitant]
     Indication: PRODUCT USED FOR UNKNOWN INDICATION
     Route: 065

REACTIONS (3)
  - NECROTISING FASCIITIS [None]
  - SEPTIC SHOCK [None]
  - MULTI-ORGAN FAILURE [None]
